FAERS Safety Report 12476608 (Version 1)
Quarter: 2016Q2

REPORT INFORMATION
  Report Type: Report from Study
  Country: MY (occurrence: MY)
  Receive Date: 20160617
  Receipt Date: 20160617
  Transmission Date: 20160815
  Serious: Yes (Death, Other)
  Sender: FDA-Public Use
  Company Number: PHHY2016MY054268

PATIENT
  Age: 27 Year
  Sex: Male

DRUGS (1)
  1. TASIGNA [Suspect]
     Active Substance: NILOTINIB
     Indication: CHRONIC MYELOID LEUKAEMIA
     Dosage: 400 MG, BID
     Route: 065

REACTIONS (4)
  - Blast crisis in myelogenous leukaemia [Unknown]
  - Torulopsis infection [Unknown]
  - Chronic myeloid leukaemia recurrent [Unknown]
  - Death [Fatal]

NARRATIVE: CASE EVENT DATE: 201507
